APPROVED DRUG PRODUCT: CIPROFLOXACIN HYDROCHLORIDE
Active Ingredient: CIPROFLOXACIN HYDROCHLORIDE
Strength: EQ 750MG BASE
Dosage Form/Route: TABLET;ORAL
Application: A074124 | Product #003
Applicant: BARR LABORATORIES INC
Approved: Jun 9, 2004 | RLD: No | RS: No | Type: DISCN